FAERS Safety Report 4785450-6 (Version None)
Quarter: 2005Q4

REPORT INFORMATION
  Report Type: 
  Country: None (occurrence: None)
  Receive Date: 20051003
  Receipt Date: 20050829
  Transmission Date: 20060501
  Serious: Yes (Hospitalization)
  Sender: FDA-Public Use
  Company Number: 2005AP04663

PATIENT
  Age: 28152 Day
  Sex: Male
  Weight: 54.6 kg

DRUGS (10)
  1. OMEPRAZOLE [Suspect]
     Indication: REFLUX OESOPHAGITIS
     Route: 048
     Dates: start: 20050714, end: 20050815
  2. OMEPRAZOLE [Suspect]
     Indication: STOMACH DISCOMFORT
     Route: 048
     Dates: start: 20050714, end: 20050815
  3. OMEPRAZOLE [Suspect]
     Indication: GASTROINTESTINAL HAEMORRHAGE
     Route: 048
     Dates: start: 20050714, end: 20050815
  4. HERBESSER [Concomitant]
     Indication: VASODILATATION
     Route: 048
     Dates: start: 19931021
  5. SELBEX [Concomitant]
     Indication: GASTROINTESTINAL DISORDER
     Route: 048
     Dates: start: 19940318
  6. CONAN [Concomitant]
     Indication: HYPERTENSION
     Route: 048
     Dates: start: 19990726
  7. ASPIRIN [Concomitant]
     Indication: ANTIPLATELET THERAPY
     Route: 048
     Dates: start: 20010910
  8. BLOPRESS [Concomitant]
     Indication: HYPERTENSION
     Route: 048
     Dates: start: 20050318
  9. ALLOID G [Concomitant]
     Indication: GASTROINTESTINAL DISORDER
     Route: 048
     Dates: start: 20050701
  10. SIGMART [Concomitant]
     Indication: VASODILATATION
     Route: 048

REACTIONS (2)
  - HEPATIC FUNCTION ABNORMAL [None]
  - RHABDOMYOLYSIS [None]
